FAERS Safety Report 6562424-6 (Version None)
Quarter: 2010Q1

REPORT INFORMATION
  Report Type: 
  Country: None (occurrence: None)
  Receive Date: 20100130
  Receipt Date: 20091113
  Transmission Date: 20100710
  Serious: No
  Sender: FDA-Public Use
  Company Number: US-ABBOTT-09P-163-0608588-00

PATIENT
  Sex: Female
  Weight: 49.486 kg

DRUGS (1)
  1. HUMIRA [Suspect]
     Indication: CROHN'S DISEASE
     Dosage: 80MG DAY
     Dates: start: 20091111

REACTIONS (5)
  - ABDOMINAL PAIN UPPER [None]
  - DYSGEUSIA [None]
  - FATIGUE [None]
  - INJECTION SITE PAIN [None]
  - MUSCLE SPASMS [None]
